FAERS Safety Report 8267107-2 (Version None)
Quarter: 2012Q2

REPORT INFORMATION
  Report Type: 
  Country: None (occurrence: None)
  Receive Date: 20120409
  Receipt Date: 20120402
  Transmission Date: 20120825
  Serious: Yes (Hospitalization, Other)
  Sender: FDA-Public Use
  Company Number: ES-JNJFOC-20120308053

PATIENT
  Age: 66 Year
  Sex: Male

DRUGS (6)
  1. FENTANYL CITRATE [Suspect]
     Route: 062
  2. FENTANYL CITRATE [Suspect]
     Route: 062
  3. METAMIZOL [Concomitant]
     Route: 065
  4. PREGABALIN [Concomitant]
     Route: 065
  5. FENTANYL CITRATE [Suspect]
     Indication: CANCER PAIN
     Route: 062
  6. FENTANYL CITRATE [Concomitant]
     Route: 060

REACTIONS (2)
  - DYSPNOEA [None]
  - INADEQUATE ANALGESIA [None]
